FAERS Safety Report 5884805-6 (Version None)
Quarter: 2008Q3

REPORT INFORMATION
  Report Type: 
  Country: None (occurrence: None)
  Receive Date: 20080916
  Receipt Date: 20080904
  Transmission Date: 20090109
  Serious: Yes (Hospitalization, Other)
  Sender: FDA-Public Use
  Company Number: US-ELI_LILLY_AND_COMPANY-US200809001008

PATIENT
  Sex: Female

DRUGS (5)
  1. FORTEO [Suspect]
     Indication: OSTEOPOROSIS
     Dosage: UNK, UNK
     Dates: start: 20080101
  2. ASPIRIN [Concomitant]
     Dates: start: 19980101, end: 20080828
  3. PROPRANOLOL [Concomitant]
     Indication: TREMOR
     Dosage: 0.5 D/F, UNK
     Dates: end: 20080901
  4. NIFEDIAC CC [Concomitant]
     Dosage: 60 MG, DAILY (1/D)
  5. FUROSEMIDE [Concomitant]
     Dosage: 20 MG, AS NEEDED

REACTIONS (8)
  - AURA [None]
  - FEAR [None]
  - FRUSTRATION [None]
  - HYPOAESTHESIA [None]
  - HYPOAESTHESIA EYE [None]
  - HYPOGLYCAEMIA [None]
  - TRANSIENT ISCHAEMIC ATTACK [None]
  - TREMOR [None]
